FAERS Safety Report 9407568 (Version 7)
Quarter: 2013Q4

REPORT INFORMATION
  Report Type: Report from Study
  Country: NL (occurrence: NL)
  Receive Date: 20130718
  Receipt Date: 20131009
  Transmission Date: 20140711
  Serious: Yes (Death, Hospitalization, Other)
  Sender: FDA-Public Use
  Company Number: NL-MILLENNIUM PHARMACEUTICALS, INC.-2013-05491

PATIENT
  Sex: 0

DRUGS (22)
  1. VELCADE [Suspect]
     Indication: PLASMA CELL MYELOMA
     Dosage: 2.9 MG, UNK
     Route: 042
     Dates: start: 20090825, end: 20090908
  2. VELCADE [Suspect]
     Dosage: 1.3 MG/M2, UNK
     Route: 042
     Dates: start: 20110628, end: 20120803
  3. REVLIMID [Suspect]
     Indication: PLASMA CELL MYELOMA
     Dosage: 10 MG, UNK
     Route: 048
     Dates: start: 20090407, end: 20090914
  4. REVLIMID [Suspect]
     Dosage: 10 MG, UNK
     Route: 048
     Dates: start: 20090922, end: 20100816
  5. DEXAMETHASONE [Suspect]
     Indication: PLASMA CELL MYELOMA
     Dosage: 20 MG, UNK
     Route: 048
     Dates: start: 20090825, end: 20090909
  6. HYDROCHLOORTHIAZIDE [Concomitant]
     Indication: HYPERTENSION
     Dosage: 25 MG, QD
  7. METOCLOPRAMIDE [Concomitant]
     Indication: GASTROINTESTINAL DISORDER
     Dosage: 10 MG, TID
  8. AMITRIPTYLINE [Concomitant]
     Indication: ANTIDEPRESSANT THERAPY
     Dosage: 50 MG, TID
  9. PERSANTIN [Concomitant]
     Indication: ANTICOAGULANT THERAPY
     Dosage: 150 MG, BID
  10. DIPHANTOINE [Concomitant]
     Indication: EPILEPSY
     Dosage: UNK
  11. TRAMADOL [Concomitant]
     Indication: PAIN MANAGEMENT
     Dosage: 50 MG, TID
  12. TRAMADOL [Concomitant]
     Dosage: 50 MG, QID
  13. OMEPRAZOL                          /00661201/ [Concomitant]
     Indication: PROPHYLAXIS
     Dosage: 20 MG, BID
  14. TILDIEM [Concomitant]
     Indication: HYPERTENSION
     Dosage: 300 MG, UNK
  15. ASCAL                              /00002702/ [Concomitant]
     Indication: ANTICOAGULANT THERAPY
     Dosage: 100 MG, UNK
  16. ZELITREX [Concomitant]
     Indication: ANTIVIRAL PROPHYLAXIS
     Dosage: UNK
  17. PRAVASTATINE [Concomitant]
     Indication: CARDIOVASCULAR EVENT PROPHYLAXIS
     Dosage: 40 MG, UNK
  18. FOSAMAX [Concomitant]
     Dosage: 30 MG, UNK
  19. ARCOXIA [Concomitant]
     Indication: ANTIINFLAMMATORY THERAPY
     Dosage: 60 MG, UNK
  20. PARACETAMOL [Concomitant]
     Indication: PAIN MANAGEMENT
     Dosage: 400 MG, UNK
  21. XANAX [Concomitant]
     Indication: ANXIETY
  22. DUROGESIC [Concomitant]
     Indication: PAIN MANAGEMENT

REACTIONS (1)
  - Breast cancer [Fatal]
